FAERS Safety Report 6591551-2 (Version None)
Quarter: 2010Q1

REPORT INFORMATION
  Report Type: 
  Country: None (occurrence: None)
  Receive Date: 20100221
  Receipt Date: 20100201
  Transmission Date: 20100710
  Serious: Yes (Hospitalization)
  Sender: FDA-Public Use
  Company Number: KR-MERCK-1002KOR00012

PATIENT
  Age: 32 Year
  Sex: Male

DRUGS (2)
  1. PRIMAXIN [Suspect]
     Indication: LEMIERRE SYNDROME
     Route: 065
  2. METRONIDAZOLE [Concomitant]
     Indication: LEMIERRE SYNDROME
     Route: 065

REACTIONS (1)
  - DRUG INEFFECTIVE [None]
